FAERS Safety Report 9062762 (Version 1)
Quarter: 2013Q1

REPORT INFORMATION
  Report Type: Report from Study
  Country: US (occurrence: US)
  Receive Date: 20130129
  Receipt Date: 20130129
  Transmission Date: 20140127
  Serious: No
  Sender: FDA-Public Use
  Company Number: US-ABBOTT-12P-163-0945396-00

PATIENT
  Age: 46 Year
  Sex: Female

DRUGS (10)
  1. HUMIRA 40 MG/ 0.8 ML PRE-FILLED SYRINGE [Suspect]
     Indication: ARTHRITIS REACTIVE
     Dates: start: 20120424
  2. HUMIRA 40 MG/ 0.8 ML PRE-FILLED SYRINGE [Suspect]
     Indication: PERICARDITIS
  3. PREDNISONE [Concomitant]
     Indication: PRODUCT USED FOR UNKNOWN INDICATION
     Dosage: 2.5MG DAILY
  4. COLCHICINE [Concomitant]
     Indication: GOUT
     Dosage: 0.6MG DAILY
  5. MELOXICAM [Concomitant]
     Indication: PRODUCT USED FOR UNKNOWN INDICATION
     Dosage: 7.5MG DAILY
  6. METOPROLOL [Concomitant]
     Indication: BLOOD PRESSURE
  7. COREG CR [Concomitant]
     Indication: BLOOD PRESSURE
     Dosage: 10MG DAILY
  8. ALDACTONE [Concomitant]
     Indication: HYPERTENSION
     Dosage: 25MG DAILY
  9. AMITRIPTYLINE [Concomitant]
     Indication: INSOMNIA
     Dosage: AT BEDTIME
  10. OPHTHALMOLOGICALS [Concomitant]
     Indication: UVEITIS
     Dosage: EVERY DAY

REACTIONS (2)
  - Paraesthesia oral [Not Recovered/Not Resolved]
  - Oral herpes [Not Recovered/Not Resolved]
